FAERS Safety Report 23338606 (Version 1)
Quarter: 2023Q4

REPORT INFORMATION
  Report Type: Report from Study
  Country: US (occurrence: US)
  Receive Date: 20231226
  Receipt Date: 20231226
  Transmission Date: 20240109
  Serious: Yes (Hospitalization)
  Sender: FDA-Public Use
  Company Number: US-SA-2023SA394840

PATIENT
  Age: 76 Year
  Sex: Male

DRUGS (23)
  1. CABAZITAXEL [Suspect]
     Active Substance: CABAZITAXEL
     Indication: Adenocarcinoma
     Dosage: 15 MG/M2, Q3W
     Route: 042
     Dates: start: 20231024, end: 20231024
  2. CABAZITAXEL [Suspect]
     Active Substance: CABAZITAXEL
     Dosage: 15 MG/M2, Q3W
     Route: 042
     Dates: start: 20231114, end: 20231114
  3. CARBOPLATIN [Suspect]
     Active Substance: CARBOPLATIN
     Indication: Adenocarcinoma
     Dosage: 10 MG/ML, Q3W
     Route: 042
     Dates: start: 20231024, end: 20231024
  4. CARBOPLATIN [Suspect]
     Active Substance: CARBOPLATIN
     Dosage: 91.6 MG/ML, Q3W
     Route: 042
     Dates: start: 20231114, end: 20231114
  5. DORZOLAMIDE AND TIMOLOL [Concomitant]
     Active Substance: DORZOLAMIDE HYDROCHLORIDE\TIMOLOL MALEATE
     Dosage: UNK
     Dates: start: 2017
  6. LATANOPROST [Concomitant]
     Active Substance: LATANOPROST
     Dosage: UNK
     Dates: start: 2017
  7. LEVOTHYROXINE [Concomitant]
     Active Substance: LEVOTHYROXINE
     Dosage: UNK
     Dates: start: 2015
  8. OXYCODONE AND ACETAMINOPHEN [Concomitant]
     Active Substance: ACETAMINOPHEN\OXYCODONE HYDROCHLORIDE
     Dosage: UNK
     Dates: start: 202307
  9. ONDANSETRON [Concomitant]
     Active Substance: ONDANSETRON
     Dosage: UNK
     Dates: start: 202307
  10. NAPROXEN [Concomitant]
     Active Substance: NAPROXEN
     Dosage: UNK
     Dates: start: 202307
  11. ASPIRIN [Concomitant]
     Active Substance: ASPIRIN
     Dosage: UNK
     Dates: start: 2020
  12. GREEN TEA EXTRACT [CAMELLIA SINENSIS] [Concomitant]
     Dosage: UNK
     Dates: start: 2022
  13. PYGEUM AFRICANUM [Concomitant]
     Dosage: UNK
     Dates: start: 2020
  14. NETTLE [URTICA DIOICA] [Concomitant]
     Dosage: UNK
     Dates: start: 2020
  15. HERBALS\TURMERIC [Concomitant]
     Active Substance: HERBALS\TURMERIC
     Dosage: UNK
     Dates: start: 2020
  16. ZINC SULFATE [Concomitant]
     Active Substance: ZINC SULFATE
     Dosage: UNK
     Dates: start: 2018
  17. VITAMIN D NOS [Concomitant]
     Active Substance: VITAMIN D NOS
     Dosage: UNK
     Dates: start: 2021
  18. PALONOSETRON [Concomitant]
     Active Substance: PALONOSETRON
     Dosage: UNK
     Dates: start: 20231114, end: 20231114
  19. FAMOTIDINE [Concomitant]
     Active Substance: FAMOTIDINE
     Dosage: UNK
     Dates: start: 20231114, end: 20231114
  20. DIPHENHYDRAMINE [Concomitant]
     Active Substance: DIPHENHYDRAMINE
     Dosage: UNK
     Dates: start: 20231114, end: 20231114
  21. DEXAMETHASONE [Concomitant]
     Active Substance: DEXAMETHASONE
     Dosage: UNK
     Dates: start: 20231114, end: 20231114
  22. APREPITANT [Concomitant]
     Active Substance: APREPITANT
     Dosage: UNK
     Dates: start: 20231114, end: 20231114
  23. PEGFILGRASTIM [Concomitant]
     Active Substance: PEGFILGRASTIM
     Dosage: UNK
     Dates: start: 20231114, end: 20231114

REACTIONS (5)
  - Pruritus [Unknown]
  - Hypotension [Not Recovered/Not Resolved]
  - Cytokine release syndrome [Unknown]
  - Asthenia [Unknown]
  - Pneumonia [Unknown]

NARRATIVE: CASE EVENT DATE: 20231206
